FAERS Safety Report 14484037 (Version 1)
Quarter: 2018Q1

REPORT INFORMATION
  Report Type: Spontaneous
  Country: FR (occurrence: FR)
  Receive Date: 20180205
  Receipt Date: 20180205
  Transmission Date: 20180509
  Serious: Yes (Other)
  Sender: FDA-Public Use
  Company Number: FR-MERCK KGAA-2041359

PATIENT
  Age: 66 Year
  Sex: Female

DRUGS (1)
  1. NOVOTHYROX [Suspect]
     Active Substance: LEVOTHYROXINE SODIUM
     Indication: POST PROCEDURAL HYPOTHYROIDISM
     Dates: start: 20170702

REACTIONS (49)
  - Tinnitus [None]
  - Visual impairment [None]
  - Renal pain [None]
  - Amnesia [None]
  - Nausea [None]
  - Abnormal weight gain [None]
  - Dyspnoea [None]
  - Asthenia [None]
  - Cough [None]
  - Ventricular extrasystoles [None]
  - Blood thyroid stimulating hormone decreased [None]
  - Alopecia [None]
  - General physical health deterioration [None]
  - Insomnia [None]
  - Myalgia [None]
  - Vertigo [None]
  - Pain in extremity [None]
  - Gait inability [None]
  - Dizziness [None]
  - Presyncope [None]
  - Gastrointestinal pain [None]
  - Daydreaming [None]
  - Hypokinesia [None]
  - Sleep disorder [None]
  - Oedema peripheral [None]
  - Hot flush [None]
  - Headache [None]
  - Gastrointestinal motility disorder [None]
  - Balance disorder [None]
  - Anxiety [None]
  - Mood swings [Recovering/Resolving]
  - Emotional disorder [None]
  - Abdominal distension [None]
  - Negative thoughts [None]
  - Mental impairment [None]
  - Memory impairment [None]
  - Decreased interest [None]
  - Vomiting [None]
  - Hyperhidrosis [None]
  - Fatigue [None]
  - Malaise [None]
  - Muscle swelling [None]
  - Joint swelling [None]
  - Depression [None]
  - Irritable bowel syndrome [None]
  - Arthralgia [None]
  - Gait disturbance [None]
  - Muscle spasms [None]
  - Tachycardia [None]

NARRATIVE: CASE EVENT DATE: 201707
